FAERS Safety Report 4664332-4 (Version None)
Quarter: 2005Q2

REPORT INFORMATION
  Report Type: 
  Country: None (occurrence: None)
  Receive Date: 20050518
  Receipt Date: 20050511
  Transmission Date: 20051028
  Serious: Yes (Hospitalization)
  Sender: FDA-Public Use
  Company Number: US-BRISTOL-MYERS SQUIBB COMPANY-12963625

PATIENT
  Age: 69 Year
  Sex: Male
  Weight: 95 kg

DRUGS (6)
  1. GLUCOVANCE [Suspect]
  2. LESCOL [Concomitant]
  3. TOPROL-XL [Concomitant]
  4. ASPIRIN [Concomitant]
  5. ALTACE [Concomitant]
  6. NITROGLYCERIN TABS [Concomitant]

REACTIONS (1)
  - MYOCARDIAL INFARCTION [None]
